FAERS Safety Report 6347059-2 (Version None)
Quarter: 2009Q3

REPORT INFORMATION
  Report Type: 
  Country: None (occurrence: None)
  Receive Date: 20090910
  Receipt Date: 20090901
  Transmission Date: 20100115
  Serious: Yes (Hospitalization, Disabling, Other)
  Sender: FDA-Public Use
  Company Number: GB-PFIZER INC-2009240618

PATIENT
  Age: 69 Year

DRUGS (4)
  1. DOXAZOSIN MESILATE [Suspect]
     Indication: UROGENITAL DISORDER
     Dosage: UNK %, UNK
  2. DOXAZOSIN MESILATE [Suspect]
     Indication: DYSURIA
  3. LIPITOR [Suspect]
     Indication: BLOOD CHOLESTEROL ABNORMAL
     Dosage: UNK %, UNK
     Dates: start: 20070201
  4. TAMSULOSIN HYDROCHLORIDE [Suspect]
     Dosage: UNK %, UNK

REACTIONS (13)
  - ANAEMIA [None]
  - ASTHENIA [None]
  - C-REACTIVE PROTEIN INCREASED [None]
  - DRUG INEFFECTIVE [None]
  - DYSPNOEA [None]
  - FEELING ABNORMAL [None]
  - MUSCULOSKELETAL PAIN [None]
  - NECK PAIN [None]
  - PAIN [None]
  - RENAL PAIN [None]
  - SERUM FERRITIN INCREASED [None]
  - UROGENITAL DISORDER [None]
  - WEIGHT DECREASED [None]
